FAERS Safety Report 4891928-7 (Version None)
Quarter: 2006Q1

REPORT INFORMATION
  Report Type: 
  Country: None (occurrence: None)
  Receive Date: 20060123
  Receipt Date: 20060102
  Transmission Date: 20060701
  Serious: No
  Sender: FDA-Public Use
  Company Number: NL200512003380

PATIENT
  Age: 31 Year
  Sex: Female

DRUGS (11)
  1. ZYPREXA [Suspect]
     Indication: PSYCHOTIC DISORDER
     Dosage: 5 MG, DAILY (1/D), ORAL
     Route: 048
     Dates: start: 20040201
  2. MICROGYNON (ETHINYLESTRADIOL, LEVONORGESTREL) [Concomitant]
  3. SERETIDE DISKUS (FLUTICASONE PROPIONATE, SALMETEROL XINAFOATE) [Concomitant]
  4. DIANE-35 (CYPROTERONE ACETATE, ETHINYLESTRADIOL) [Concomitant]
  5. AMOXICILLIN [Concomitant]
  6. METRONIDAZOLE [Concomitant]
  7. PRIMOLUT TABLETS (NORETHISTERONE) [Concomitant]
  8. CORSODYL (CHLORHEXIDINE GLUCONATE) [Concomitant]
  9. LORAZEPAM [Concomitant]
  10. TRYPTIZOL (AMITRIPTYLINE HYDROCHLORIDE) [Concomitant]
  11. MICROLAX (SODIUM CITRATE, SODIUM LAURYL SULFOACETATE) [Concomitant]

REACTIONS (4)
  - AMENORRHOEA [None]
  - DYSMENORRHOEA [None]
  - MENORRHAGIA [None]
  - THERAPY NON-RESPONDER [None]
